FAERS Safety Report 25250624 (Version 1)
Quarter: 2025Q2

REPORT INFORMATION
  Report Type: Spontaneous
  Country: KR (occurrence: KR)
  Receive Date: 20250429
  Receipt Date: 20250429
  Transmission Date: 20250717
  Serious: Yes (Life-Threatening, Hospitalization, Other)
  Sender: RISING PHARMACEUTICALS
  Company Number: KR-RISINGPHARMA-KR-2025RISLIT00195

PATIENT
  Age: 46 Year
  Sex: Female
  Weight: 80 kg

DRUGS (4)
  1. FLUOXETINE HYDROCHLORIDE [Suspect]
     Active Substance: FLUOXETINE HYDROCHLORIDE
     Indication: Depression
     Route: 065
  2. PHENTERMINE [Suspect]
     Active Substance: PHENTERMINE
     Indication: Obesity
     Route: 065
  3. TOPIRAMATE [Suspect]
     Active Substance: TOPIRAMATE
     Indication: Obesity
     Route: 065
  4. CHLORTHALIDONE [Suspect]
     Active Substance: CHLORTHALIDONE
     Indication: Obesity
     Route: 065

REACTIONS (23)
  - Acute respiratory distress syndrome [Recovered/Resolved]
  - Renal failure [Recovered/Resolved]
  - Multiple organ dysfunction syndrome [Recovered/Resolved]
  - Pulmonary embolism [Recovered/Resolved]
  - Akinesia [Recovered/Resolved]
  - Acute kidney injury [Recovered/Resolved]
  - Renal impairment [Recovered/Resolved]
  - Rhabdomyolysis [Recovered/Resolved]
  - Hypokalaemia [Recovered/Resolved]
  - Serotonin syndrome [Recovered/Resolved]
  - Stress cardiomyopathy [Recovered/Resolved]
  - Dysarthria [Recovered/Resolved]
  - Dysstasia [Recovered/Resolved]
  - Confusional state [Recovered/Resolved]
  - Limb discomfort [Recovered/Resolved]
  - Clonus [Recovered/Resolved]
  - Sinus tachycardia [Recovered/Resolved]
  - Left ventricular dysfunction [Recovered/Resolved]
  - Mobility decreased [Recovered/Resolved]
  - Right ventricular dysfunction [Recovered/Resolved]
  - Agitation [Recovered/Resolved]
  - Pyrexia [Recovered/Resolved]
  - Drug interaction [Unknown]
